FAERS Safety Report 24836393 (Version 1)
Quarter: 2025Q1

REPORT INFORMATION
  Report Type: Spontaneous
  Country: US (occurrence: US)
  Receive Date: 20250113
  Receipt Date: 20250113
  Transmission Date: 20250408
  Serious: No
  Sender: ROCHE
  Company Number: US-ROCHE-10000171656

PATIENT
  Age: 40 Year
  Sex: Female

DRUGS (1)
  1. XOLAIR [Suspect]
     Active Substance: OMALIZUMAB
     Indication: Product used for unknown indication
     Route: 058

REACTIONS (6)
  - Asthma [Unknown]
  - Mastocytosis [Unknown]
  - Memory impairment [Unknown]
  - Inflammation [Unknown]
  - Swelling [Unknown]
  - Skin reaction [Unknown]
